FAERS Safety Report 4939283-8 (Version None)
Quarter: 2006Q1

REPORT INFORMATION
  Report Type: 
  Country: None (occurrence: None)
  Receive Date: 20060306
  Receipt Date: 20060223
  Transmission Date: 20060701
  Serious: Yes (Life-Threatening, Hospitalization)
  Sender: FDA-Public Use
  Company Number: 2006RR-01669

PATIENT
  Age: 53 Year
  Sex: Male

DRUGS (2)
  1. METFORMIN HCL [Suspect]
     Dosage: 50000 MG, UNK
     Route: 065
  2. METOPROLOL TARTRATE [Suspect]
     Dosage: UNK
     Route: 065

REACTIONS (10)
  - ABDOMINAL PAIN [None]
  - ASTHENIA [None]
  - BRADYCARDIA [None]
  - CARDIAC ARREST [None]
  - HAEMODIALYSIS [None]
  - HYPOGLYCAEMIA [None]
  - LACTIC ACIDOSIS [None]
  - MULTIPLE DRUG OVERDOSE INTENTIONAL [None]
  - RENAL FAILURE ACUTE [None]
  - RESPIRATORY FAILURE [None]
